FAERS Safety Report 17325515 (Version 1)
Quarter: 2020Q1

REPORT INFORMATION
  Report Type: Spontaneous
  Country: CA (occurrence: CA)
  Receive Date: 20200127
  Receipt Date: 20200127
  Transmission Date: 20200409
  Serious: Yes (Other)
  Sender: FDA-Public Use
  Company Number: CA-PFIZER INC-2020032261

PATIENT
  Sex: Female

DRUGS (6)
  1. ENBREL [Suspect]
     Active Substance: ETANERCEPT
     Indication: RHEUMATOID ARTHRITIS
     Route: 065
  2. ARAVA [Suspect]
     Active Substance: LEFLUNOMIDE
     Route: 065
  3. PLAQUENIL [Suspect]
     Active Substance: HYDROXYCHLOROQUINE SULFATE
     Route: 065
  4. METHOTREXATE SODIUM. [Suspect]
     Active Substance: METHOTREXATE SODIUM
     Indication: RHEUMATOID ARTHRITIS
     Dosage: 25 MG, WEEKLY
     Route: 058
  5. ORENCIA [Suspect]
     Active Substance: ABATACEPT
     Route: 065
  6. SIMPONI [Suspect]
     Active Substance: GOLIMUMAB
     Route: 058

REACTIONS (6)
  - Off label use [Unknown]
  - Arthropathy [Not Recovered/Not Resolved]
  - Product use issue [Unknown]
  - Joint swelling [Not Recovered/Not Resolved]
  - Treatment failure [Not Recovered/Not Resolved]
  - Contraindicated product administered [Unknown]
